FAERS Safety Report 4633357-7 (Version None)
Quarter: 2005Q2

REPORT INFORMATION
  Report Type: 
  Country: None (occurrence: None)
  Receive Date: 20050408
  Receipt Date: 20050323
  Transmission Date: 20051028
  Serious: Yes (Other)
  Sender: FDA-Public Use
  Company Number: 2004BI001831

PATIENT
  Age: 29 Year
  Sex: Female

DRUGS (5)
  1. AVONEX [Suspect]
     Indication: MULTIPLE SCLEROSIS
     Dosage: 30 UG;;Q5D; IM
     Route: 030
     Dates: start: 20010601, end: 20040525
  2. JUICE PLUS HERBAL [Concomitant]
  3. SUPPLEMENT [Concomitant]
  4. PRENATAL VITAMINS [Concomitant]
  5. FOLIC ACID [Concomitant]

REACTIONS (3)
  - DRUG EXPOSURE DURING PREGNANCY [None]
  - INTRA-UTERINE DEATH [None]
  - PLACENTAL INSUFFICIENCY [None]
